FAERS Safety Report 9891715 (Version 2)
Quarter: 2014Q2

REPORT INFORMATION
  Report Type: Spontaneous
  Country: CA (occurrence: CA)
  Receive Date: 20140212
  Receipt Date: 20140530
  Transmission Date: 20141212
  Serious: Yes (Death, Life-Threatening)
  Sender: FDA-Public Use
  Company Number: CA-PFIZER INC-2014036975

PATIENT
  Age: 58 Year
  Sex: Male

DRUGS (7)
  1. SUTENT [Suspect]
     Indication: PANCREATIC NEUROENDOCRINE TUMOUR
     Dosage: 37.5 MG, DAILY
     Route: 048
     Dates: start: 201206, end: 201401
  2. SANDOSTATIN LAR [Concomitant]
     Indication: NEUROENDOCRINE CARCINOMA
     Dosage: 30 MG, EVERY 3 WEEKS (EVERY 21 DAYS)
     Route: 030
     Dates: start: 200912, end: 20140108
  3. RAMIPRIL APOTEX [Concomitant]
     Indication: BLOOD PRESSURE
     Dosage: 5 MG, 1X/DAY
  4. TEVA-LORAZEPAM [Concomitant]
     Indication: ANXIETY
     Dosage: 1-2 TABLETS AT BEDTIME
     Route: 048
  5. INSUL 30/70 [Concomitant]
     Dosage: 20UNITS AT BREAKFAST AND 10UNITS AT SUPPER
  6. MIRTAZAPINE [Concomitant]
     Dosage: 30 MG, DAILY
     Route: 048
  7. TYLENOL [Concomitant]
     Indication: PYREXIA

REACTIONS (8)
  - Pneumonia [Fatal]
  - Depressed level of consciousness [Unknown]
  - Electrolyte imbalance [Unknown]
  - Neutrophil count decreased [Unknown]
  - Nausea [Unknown]
  - Vomiting [Unknown]
  - Diarrhoea [Unknown]
  - Pyrexia [Unknown]
